FAERS Safety Report 23994800 (Version 1)
Quarter: 2024Q2

REPORT INFORMATION
  Report Type: Spontaneous
  Country: CA (occurrence: CA)
  Receive Date: 20240620
  Receipt Date: 20240620
  Transmission Date: 20240716
  Serious: Yes (Other)
  Sender: FDA-Public Use
  Company Number: CA-PFIZER INC-202400195317

PATIENT
  Age: 49 Year
  Sex: Female

DRUGS (8)
  1. RUXIENCE [Suspect]
     Active Substance: RITUXIMAB-PVVR
     Indication: Rheumatoid arthritis
     Dosage: DAY 1 AND DAY 15
     Route: 042
     Dates: start: 20240213, end: 20240227
  2. SULFASALAZINE [Concomitant]
     Active Substance: SULFASALAZINE
     Indication: Rheumatoid arthritis
     Dosage: 500 MG, 2X/DAY
     Route: 065
  3. METHOTREXATE [Concomitant]
     Active Substance: METHOTREXATE
     Indication: Rheumatoid arthritis
     Dosage: 25 MG, WEEKLY
     Route: 065
  4. PLAQUENIL [Concomitant]
     Active Substance: HYDROXYCHLOROQUINE SULFATE
     Dosage: UNK
  5. FOLIC ACID [Concomitant]
     Active Substance: FOLIC ACID
     Dosage: 5 MG, 2X/WEEK
     Route: 065
  6. VITAMIN D NOS [Concomitant]
     Active Substance: CHOLECALCIFEROL\ERGOCALCIFEROL
     Dosage: 2000 IU, 1X/DAY
     Route: 065
  7. PREDNISONE [Concomitant]
     Active Substance: PREDNISONE
     Dosage: UNKNOWN LOW-DOSE
     Route: 065
  8. PREDNISONE [Concomitant]
     Active Substance: PREDNISONE
     Dosage: UNKNOWN FREQUENCY
     Route: 065
     Dates: start: 2024

REACTIONS (5)
  - Spinal fracture [Unknown]
  - Therapeutic product effect incomplete [Unknown]
  - Musculoskeletal chest pain [Unknown]
  - Connective tissue disorder [Unknown]
  - Back pain [Unknown]

NARRATIVE: CASE EVENT DATE: 20240101
